FAERS Safety Report 6099989-7 (Version None)
Quarter: 2009Q1

REPORT INFORMATION
  Report Type: 
  Country: None (occurrence: None)
  Receive Date: 20090303
  Receipt Date: 20090224
  Transmission Date: 20090719
  Serious: Yes (Congenital Anomaly)
  Sender: FDA-Public Use
  Company Number: A0748173A

PATIENT
  Sex: Female

DRUGS (7)
  1. PAXIL [Suspect]
     Indication: DEPRESSION
     Dosage: 40MG VARIABLE DOSE
     Dates: start: 19980916, end: 19990101
  2. AMOXICILLIN [Concomitant]
     Dates: start: 20031217
  3. VITAMIN TAB [Concomitant]
  4. TYLENOL W/ CODEINE NO. 3 [Concomitant]
     Dates: start: 19990421
  5. VENTOLIN [Concomitant]
  6. PREDNISONE [Concomitant]
     Dates: start: 19990301
  7. CEFZIL [Concomitant]
     Dates: start: 19990301

REACTIONS (4)
  - DEAFNESS [None]
  - DRUG EXPOSURE DURING PREGNANCY [None]
  - HEART DISEASE CONGENITAL [None]
  - HEART RATE IRREGULAR [None]
